FAERS Safety Report 6655895-8 (Version None)
Quarter: 2010Q1

REPORT INFORMATION
  Report Type: 
  Country: None (occurrence: None)
  Receive Date: 20100329
  Receipt Date: 20100317
  Transmission Date: 20100710
  Serious: Yes (Hospitalization)
  Sender: FDA-Public Use
  Company Number: PHHY2010US17012

PATIENT
  Age: 65 Year
  Sex: Female

DRUGS (9)
  1. GLEEVEC [Suspect]
     Indication: CHRONIC LYMPHOCYTIC LEUKAEMIA
     Dosage: 400 MG, DAILY
     Route: 048
     Dates: start: 20091201
  2. LACTULOSE [Concomitant]
  3. MYLANTA [Concomitant]
  4. VICODIN [Concomitant]
  5. METAMUCIL-2 [Concomitant]
  6. DIAMOX SRC [Concomitant]
  7. POTASSIUM CHLORIDE [Concomitant]
  8. CRESTOR [Concomitant]
  9. COZAAR [Concomitant]

REACTIONS (2)
  - PLEURAL EFFUSION [None]
  - THORACIC CAVITY DRAINAGE [None]
